FAERS Safety Report 5105795-X (Version None)
Quarter: 2006Q3

REPORT INFORMATION
  Report Type: 
  Country: None (occurrence: None)
  Receive Date: 20060915
  Receipt Date: 20060809
  Transmission Date: 20061208
  Serious: Yes (Hospitalization)
  Sender: FDA-Public Use
  Company Number: FR-NOVOPROD-256133

PATIENT
  Age: 59 Year
  Sex: Male
  Weight: 91 kg

DRUGS (1)
  1. NOVONORM [Suspect]
     Indication: DIABETES MELLITUS
     Dates: start: 20020612

REACTIONS (2)
  - EPILEPSY [None]
  - HYPOGLYCAEMIA [None]
